FAERS Safety Report 21496987 (Version 2)
Quarter: 2022Q4

REPORT INFORMATION
  Report Type: Spontaneous
  Country: US (occurrence: None)
  Receive Date: 20221023
  Receipt Date: 20221108
  Transmission Date: 20230113
  Serious: No
  Sender: FDA-Public Use
  Company Number: 2022A353222

PATIENT

DRUGS (3)
  1. PULMICORT FLEXHALER [Suspect]
     Active Substance: BUDESONIDE
     Indication: Asthma
     Dosage: 180MCG, 120 INHALATIONS, 1 PUFF TWICE A DAY
     Route: 055
     Dates: start: 20220922
  2. PULMICORT FLEXHALER [Suspect]
     Active Substance: BUDESONIDE
     Indication: Tracheitis
     Dosage: 180MCG, 120 INHALATIONS, 1 PUFF TWICE A DAY
     Route: 055
     Dates: start: 20220922
  3. PULMICORT FLEXHALER [Suspect]
     Active Substance: BUDESONIDE
     Indication: Bronchitis
     Dosage: 180MCG, 120 INHALATIONS, 1 PUFF TWICE A DAY
     Route: 055
     Dates: start: 20220922

REACTIONS (5)
  - Cough [Not Recovered/Not Resolved]
  - Drug dose omission by device [Unknown]
  - Intentional device misuse [Unknown]
  - Product use issue [Unknown]
  - Device malfunction [Unknown]

NARRATIVE: CASE EVENT DATE: 20220922
